FAERS Safety Report 21966990 (Version 2)
Quarter: 2023Q1

REPORT INFORMATION
  Report Type: Report from Study
  Country: CA (occurrence: CA)
  Receive Date: 20230208
  Receipt Date: 20230321
  Transmission Date: 20230418
  Serious: Yes (Hospitalization, Other)
  Sender: FDA-Public Use
  Company Number: CA-ABBVIE-4298364

PATIENT
  Age: 66 Year
  Sex: Male
  Weight: 108.86 kg

DRUGS (1)
  1. SKYRIZI [Suspect]
     Active Substance: RISANKIZUMAB-RZAA
     Indication: Psoriasis
     Route: 058
     Dates: start: 20220216

REACTIONS (7)
  - Anaemia [Recovered/Resolved]
  - Bladder catheterisation [Unknown]
  - Diverticular perforation [Unknown]
  - Colonic abscess [Unknown]
  - Infection [Not Recovered/Not Resolved]
  - Diabetes mellitus [Unknown]
  - Unevaluable event [Unknown]

NARRATIVE: CASE EVENT DATE: 20230201
